FAERS Safety Report 6048880-0 (Version None)
Quarter: 2009Q1

REPORT INFORMATION
  Report Type: 
  Country: None (occurrence: None)
  Receive Date: 20090121
  Receipt Date: 20080130
  Transmission Date: 20090719
  Serious: Yes (Other)
  Sender: FDA-Public Use
  Company Number: US-WYE-H02371608

PATIENT
  Age: 51 Year
  Sex: Female

DRUGS (1)
  1. PREMPRO [Suspect]
     Indication: HOT FLUSH
     Dosage: 0.45MG/2.5MG, ORAL
     Route: 048
     Dates: start: 20080125, end: 20080126

REACTIONS (2)
  - CHILLS [None]
  - HEART RATE INCREASED [None]
